FAERS Safety Report 5939041-1 (Version None)
Quarter: 2008Q4

REPORT INFORMATION
  Report Type: 
  Country: None (occurrence: None)
  Receive Date: 20081103
  Receipt Date: 20081024
  Transmission Date: 20090506
  Serious: Yes (Life-Threatening)
  Sender: FDA-Public Use
  Company Number: JP-SANOFI-SYNTHELABO-A01200804498

PATIENT
  Sex: Male
  Weight: 60 kg

DRUGS (14)
  1. MINOCYCLINE HCL [Concomitant]
     Dates: start: 20071207, end: 20071211
  2. FLUMARIN [Concomitant]
     Route: 041
     Dates: start: 20071204, end: 20071210
  3. FUNGUARD [Concomitant]
     Route: 041
     Dates: start: 20071204, end: 20071204
  4. VANCOMYCIN HYDROCHLORIDE [Concomitant]
     Route: 042
     Dates: start: 20071201, end: 20071206
  5. TIENAM [Concomitant]
     Route: 041
     Dates: start: 20071129, end: 20071129
  6. FOY [Concomitant]
     Dosage: UNK
     Route: 041
     Dates: start: 20071127, end: 20071207
  7. FIRSTCIN [Concomitant]
     Route: 041
     Dates: start: 20071127, end: 20071129
  8. GLOVENIN-1 [Concomitant]
     Route: 041
     Dates: start: 20071127, end: 20071129
  9. AVASTIN [Suspect]
     Dosage: 300 MG/BODY
     Route: 041
     Dates: start: 20070712
  10. AVASTIN [Suspect]
     Dosage: 600 MG/BODY
     Route: 041
     Dates: start: 20070823, end: 20070823
  11. AVASTIN [Suspect]
     Dosage: 300 MG/BODY
     Route: 041
     Dates: start: 20071122, end: 20071122
  12. FLUOROURACIL [Suspect]
     Dosage: 660MG/BODY (400MG/M2) IN BOLUS AND THEN CONTINUOUS INFUSION 990MG/BODY (600MG/M2)
     Route: 042
     Dates: start: 20071122, end: 20071123
  13. ELPLAT [Suspect]
     Dosage: 140.3 MG/BODY IN INFUSION ON DAY 1
     Route: 041
     Dates: start: 20071122, end: 20071122
  14. ISOVORIN [Concomitant]
     Indication: RECTAL CANCER
     Dosage: 165 MG
     Route: 041
     Dates: start: 20070712, end: 20071122

REACTIONS (1)
  - LARGE INTESTINE PERFORATION [None]
